FAERS Safety Report 23934211 (Version 2)
Quarter: 2024Q3

REPORT INFORMATION
  Report Type: Report from Study
  Country: US (occurrence: US)
  Receive Date: 20240603
  Receipt Date: 20240915
  Transmission Date: 20241017
  Serious: No
  Sender: SANDOZ
  Company Number: US-SANDOZ-SDZ2024US054224

PATIENT
  Age: 9 Year
  Sex: Male

DRUGS (4)
  1. OMNITROPE [Suspect]
     Active Substance: SOMATROPIN
     Indication: Hypopituitarism
     Dosage: 1.2 MG, QD
     Route: 058
     Dates: start: 202404
  2. OMNITROPE [Suspect]
     Active Substance: SOMATROPIN
     Indication: Hypopituitarism
     Dosage: 1.2 MG, QD
     Route: 058
     Dates: start: 202404
  3. OMNITROPE [Suspect]
     Active Substance: SOMATROPIN
     Dosage: UNK
     Route: 065
  4. OMNITROPE [Suspect]
     Active Substance: SOMATROPIN
     Dosage: UNK
     Route: 065

REACTIONS (3)
  - Device difficult to use [Unknown]
  - Circumstance or information capable of leading to medication error [Unknown]
  - Device issue [Unknown]

NARRATIVE: CASE EVENT DATE: 20240401
